FAERS Safety Report 8432898-4 (Version None)
Quarter: 2012Q2

REPORT INFORMATION
  Report Type: 
  Country: None (occurrence: None)
  Receive Date: 20120323
  Receipt Date: 20110826
  Transmission Date: 20120825
  Serious: Yes (Hospitalization)
  Sender: FDA-Public Use
  Company Number: 163-21880-11072084

PATIENT
  Age: 75 Year
  Sex: Male
  Weight: 77.1115 kg

DRUGS (18)
  1. COZAAR [Concomitant]
  2. FISH OIL (FISH OIL) [Concomitant]
  3. NEXIUM [Concomitant]
  4. INDOCIN [Concomitant]
  5. DECADRON [Concomitant]
  6. REVLIMID [Suspect]
     Indication: MULTIPLE MYELOMA
     Dosage: 25 MG, QD X 21 DAYS, PO, 10 MG, QD X 21 DAYS, PO
     Route: 048
     Dates: start: 20110225, end: 20110101
  7. REVLIMID [Suspect]
     Indication: MULTIPLE MYELOMA
     Dosage: 25 MG, QD X 21 DAYS, PO, 10 MG, QD X 21 DAYS, PO
     Route: 048
     Dates: start: 20110726
  8. UROXATRAL [Concomitant]
  9. GLYBURIDE [Concomitant]
  10. NEUPOGEN [Concomitant]
  11. PROCRIT [Concomitant]
  12. ALLOPURINOL [Concomitant]
  13. ACTONEL [Concomitant]
  14. LEVOTHYROXINE SODIUM [Concomitant]
  15. PREDNISONE TAB [Concomitant]
  16. PROGRAF [Concomitant]
  17. BACTRIM [Concomitant]
  18. TACROLIMUS [Concomitant]

REACTIONS (7)
  - HAEMOGLOBIN DECREASED [None]
  - TREMOR [None]
  - PLATELET COUNT DECREASED [None]
  - GOUT [None]
  - WHITE BLOOD CELL COUNT DECREASED [None]
  - NEUTROPHIL COUNT DECREASED [None]
  - FULL BLOOD COUNT DECREASED [None]
